FAERS Safety Report 6569166-1 (Version None)
Quarter: 2010Q1

REPORT INFORMATION
  Report Type: 
  Country: None (occurrence: None)
  Receive Date: 20100201
  Receipt Date: 20100201
  Transmission Date: 20100710
  Serious: Yes (Hospitalization)
  Sender: FDA-Public Use
  Company Number: None

PATIENT
  Sex: Female
  Weight: 67.2 kg

DRUGS (3)
  1. CYTARABINE [Suspect]
     Dosage: 1260 MG
     Dates: end: 20091230
  2. DAUNORUBICIN HCL [Suspect]
     Dosage: 450 MG
     Dates: end: 20091226
  3. ETOPOSIDE [Suspect]
     Dosage: 540 MG
     Dates: end: 20091226

REACTIONS (2)
  - CLOSTRIDIUM DIFFICILE COLITIS [None]
  - DEHYDRATION [None]
